FAERS Safety Report 9507747 (Version 1)
Quarter: 2013Q1

REPORT INFORMATION
  Report Type: Spontaneous
  Country: US (occurrence: None)
  Receive Date: 20130305
  Receipt Date: 20130305
  Transmission Date: 20140127
  Serious: Yes (Other)
  Sender: FDA-Public Use
  Company Number: 163-21880-11083464

PATIENT
  Age: 68 Year
  Sex: Female
  Weight: 74.39 kg

DRUGS (13)
  1. REVLIMID [Suspect]
     Indication: MYELOFIBROSIS
     Dosage: 10 MG, 1 IN 1 D, PO
     Route: 048
     Dates: start: 20110803, end: 20110819
  2. COUMADIN (WARFARIN SODIUM) (UNKNOWN) [Concomitant]
  3. DANAZOL (DANAZOL) (UNKNOWN) [Concomitant]
  4. PREDNISONE (PREDNISONE) (UNKNOWN) [Concomitant]
  5. HYDREA (HYDROXYCARBAMIDE) (UNKNOWN) [Concomitant]
  6. FUROSEMIDE (FUROSEMIDE) (UNKNOWN) [Concomitant]
  7. SEROQUEL (QUETIAPINE FUMARATE) (UNKNOWN) [Concomitant]
  8. ULTRAM ( TRAMADOL HYDROCHLORIDE) (UNKNOWN) [Concomitant]
  9. IRON SULFATE (TRAMADOL HYDROCHLORIDE) (UNKNOWN) [Concomitant]
  10. ATENOLOL (ATENOLOL) (UNKNOWN) [Concomitant]
  11. BENEDRYL ( DIPHENHYDRAMINE HYDROCHLORIDE) (UNKNOWN) [Concomitant]
  12. LOVENOX (HEPARIN-FRACTION, SODIUM SALT ) ( UNKNOWN) [Concomitant]
  13. TYLENOL [Concomitant]

REACTIONS (1)
  - Thrombocytopenia [None]
